FAERS Safety Report 17663452 (Version 1)
Quarter: 2020Q2

REPORT INFORMATION
  Report Type: Other
  Country: RU (occurrence: RU)
  Receive Date: 20200414
  Receipt Date: 20200414
  Transmission Date: 20200713
  Serious: Yes (Death, Other)
  Sender: FDA-Public Use
  Company Number: RU-INCYTE CORPORATION-2020IN003454

PATIENT

DRUGS (5)
  1. DACOGEN [Concomitant]
     Active Substance: DECITABINE
     Indication: PRODUCT USED FOR UNKNOWN INDICATION
     Dosage: 20 OT (20 MG/ML2 SINGLE DOSE DOSAGE: 20 MG/KG; 5 INJECTIONS 4 COURSES)
     Route: 065
     Dates: start: 201809, end: 201812
  2. JAKAVI [Suspect]
     Active Substance: RUXOLITINIB
     Indication: THROMBOCYTOSIS
     Dosage: 30 MG, QD
     Route: 065
     Dates: start: 201805, end: 201807
  3. JAKAVI [Suspect]
     Active Substance: RUXOLITINIB
     Dosage: 30 MG, QD (A DAY WITHOUT A BREAK)
     Route: 065
     Dates: start: 201809, end: 201812
  4. JAKAVI [Suspect]
     Active Substance: RUXOLITINIB
     Indication: LEUKOCYTOSIS
     Dosage: UNK
     Route: 065
     Dates: start: 201512, end: 201805
  5. JAKAVI [Suspect]
     Active Substance: RUXOLITINIB
     Indication: PRIMARY MYELOFIBROSIS
     Dosage: 20 MG, BID
     Route: 065
     Dates: start: 201509

REACTIONS (11)
  - Primary myelofibrosis [Not Recovered/Not Resolved]
  - Anaemia [Unknown]
  - Pulmonary oedema [Fatal]
  - Leukocytosis [Recovering/Resolving]
  - Gene mutation identification test positive [Unknown]
  - Pneumonia [Recovering/Resolving]
  - Splenic infarction [Unknown]
  - Acute myeloid leukaemia [Unknown]
  - Poisoning [Unknown]
  - Splenomegaly [Unknown]
  - Thrombocytosis [Unknown]

NARRATIVE: CASE EVENT DATE: 2013
